FAERS Safety Report 17531452 (Version 1)
Quarter: 2020Q1

REPORT INFORMATION
  Report Type: Other
  Country: US (occurrence: US)
  Receive Date: 20200311
  Receipt Date: 20200311
  Transmission Date: 20200409
  Serious: Yes (Life-Threatening, Hospitalization)
  Sender: FDA-Public Use
  Company Number: US-C B FLEET CO INC-202003-US-001039

PATIENT
  Age: 73 Year
  Sex: Male

DRUGS (1)
  1. ASPIRIN. [Suspect]
     Active Substance: ASPIRIN
     Indication: ANTICOAGULANT THERAPY
     Dosage: DOSE UNKNOWN
     Route: 048

REACTIONS (2)
  - Tachycardia [Recovered/Resolved]
  - Pharyngo-oesophageal diverticulum [Recovered/Resolved]
